FAERS Safety Report 4442614-9 (Version None)
Quarter: 2004Q3

REPORT INFORMATION
  Report Type: 
  Country: None (occurrence: None)
  Receive Date: 20040903
  Receipt Date: 20040720
  Transmission Date: 20050211
  Serious: Yes (Other)
  Sender: FDA-Public Use
  Company Number: 2004UW15162

PATIENT
  Age: 54 Year
  Sex: Female
  Weight: 72.5755 kg

DRUGS (5)
  1. CRESTOR [Suspect]
     Indication: BLOOD CHOLESTEROL INCREASED
     Dosage: 10 MG
  2. NORVASC [Concomitant]
  3. ESTRACE [Concomitant]
  4. PROMETRIUM [Concomitant]
  5. LASIX [Concomitant]

REACTIONS (2)
  - CHROMATURIA [None]
  - MYALGIA [None]
